FAERS Safety Report 9047381 (Version 3)
Quarter: 2013Q2

REPORT INFORMATION
  Report Type: Report from Study
  Country: US (occurrence: US)
  Receive Date: 20130201
  Receipt Date: 20130430
  Transmission Date: 20140414
  Serious: Yes (Other)
  Sender: FDA-Public Use
  Company Number: US-ABBOTT-12P-163-1026838-00

PATIENT
  Age: 57 Year
  Sex: Female

DRUGS (23)
  1. HUMIRA [Suspect]
     Indication: RHEUMATOID ARTHRITIS
     Route: 058
     Dates: start: 20121201
  2. PLAQUENIL [Concomitant]
     Indication: PRODUCT USED FOR UNKNOWN INDICATION
  3. MELOXICAM [Concomitant]
     Indication: RHEUMATOID ARTHRITIS
  4. MELOXICAM [Concomitant]
     Indication: FIBROMYALGIA
  5. MELOXICAM [Concomitant]
     Indication: ARTHRITIS
  6. PREDNISONE [Concomitant]
     Indication: RHEUMATOID ARTHRITIS
     Route: 048
  7. PREDNISONE [Concomitant]
     Indication: FIBROMYALGIA
  8. PREDNISONE [Concomitant]
     Indication: ARTHRITIS
  9. LEFLUNOMIDE [Concomitant]
     Indication: RHEUMATOID ARTHRITIS
     Dates: end: 20121227
  10. LEFLUNOMIDE [Concomitant]
     Indication: FIBROMYALGIA
  11. LEFLUNOMIDE [Concomitant]
     Indication: ARTHRITIS
  12. PROPRANOLOL [Concomitant]
     Indication: HYPERTENSION
  13. HYDROCHLOROTHIAZIDE W/ LISINOPRIL DIHYDRATE [Concomitant]
     Indication: HYPERTENSION
  14. LEVOTHYROXINE [Concomitant]
     Indication: HYPOTHYROIDISM
     Route: 048
  15. POTASSIUM [Concomitant]
     Indication: DEPRESSION
  16. FOLIC ACID [Concomitant]
     Indication: DEPRESSION
  17. PAXIL [Concomitant]
     Indication: DEPRESSION
  18. ASA [Concomitant]
     Indication: PAIN
     Route: 048
  19. VITAMIN D [Concomitant]
     Indication: PAIN
  20. CALCIUM [Concomitant]
     Indication: PAIN
  21. TYLENOL [Concomitant]
     Indication: PAIN
     Route: 048
  22. ALBUTEROL [Concomitant]
     Indication: CHRONIC OBSTRUCTIVE PULMONARY DISEASE
  23. HYDROXYCHLOROQUINE [Concomitant]

REACTIONS (13)
  - Osteonecrosis [Recovering/Resolving]
  - Joint injury [Recovering/Resolving]
  - Feeling cold [Recovering/Resolving]
  - Drug ineffective [Not Recovered/Not Resolved]
  - Night sweats [Recovering/Resolving]
  - Joint stiffness [Recovering/Resolving]
  - Arthritis [Recovering/Resolving]
  - Diarrhoea [Unknown]
  - Headache [Unknown]
  - Contusion [Unknown]
  - Cellulitis [Recovered/Resolved]
  - Gout [Not Recovered/Not Resolved]
  - Rotator cuff syndrome [Unknown]
